FAERS Safety Report 8048126-8 (Version None)
Quarter: 2012Q1

REPORT INFORMATION
  Report Type: 
  Country: None (occurrence: None)
  Receive Date: 20120112
  Receipt Date: 20120112
  Transmission Date: 20120608
  Serious: Yes (Life-Threatening, Hospitalization)
  Sender: FDA-Public Use
  Company Number: None

PATIENT
  Age: 90 Year
  Sex: Female

DRUGS (2)
  1. GLIMEPIRIDE [Suspect]
  2. DONEPEZIL HCL [Suspect]
     Dosage: DONEPEZIL 1 PO QD ORAL
     Route: 048
     Dates: start: 20111101, end: 20111201

REACTIONS (3)
  - CIRCUMSTANCE OR INFORMATION CAPABLE OF LEADING TO MEDICATION ERROR [None]
  - BLOOD GLUCOSE DECREASED [None]
  - DRUG DISPENSING ERROR [None]
